FAERS Safety Report 11648973 (Version 8)
Quarter: 2015Q4

REPORT INFORMATION
  Report Type: Spontaneous
  Country: JP (occurrence: JP)
  Receive Date: 20151021
  Receipt Date: 20151029
  Transmission Date: 20160304
  Serious: Yes (Hospitalization, Other)
  Sender: FDA-Public Use
  Company Number: PHJP2015JP018006

PATIENT
  Age: 64 Year
  Sex: Male

DRUGS (2)
  1. CICLOSPORIN [Suspect]
     Active Substance: CYCLOSPORINE
     Indication: GRAFT VERSUS HOST DISEASE
  2. CICLOSPORIN [Suspect]
     Active Substance: CYCLOSPORINE
     Indication: STEM CELL TRANSPLANT
     Route: 048

REACTIONS (15)
  - Ureteritis [Unknown]
  - Adenoviral haemorrhagic cystitis [Recovered/Resolved]
  - Inflammation [Unknown]
  - Bladder hypertrophy [Unknown]
  - Pyrexia [Unknown]
  - Prostatitis [Unknown]
  - Renal impairment [Recovering/Resolving]
  - Abdominal pain lower [Unknown]
  - Dysuria [Recovered/Resolved]
  - Hydronephrosis [Unknown]
  - Benign prostatic hyperplasia [Unknown]
  - Prostate tenderness [Unknown]
  - Back pain [Unknown]
  - Haematuria [Not Recovered/Not Resolved]
  - Pollakiuria [Recovered/Resolved]
